FAERS Safety Report 23652943 (Version 1)
Quarter: 2024Q1

REPORT INFORMATION
  Report Type: Spontaneous
  Country: US (occurrence: None)
  Receive Date: 20240319
  Receipt Date: 20240319
  Transmission Date: 20240410
  Serious: Yes (Death, Life-Threatening, Hospitalization)
  Sender: FDA-Public Use
  Company Number: None

PATIENT
  Age: 65 Year
  Sex: Male
  Weight: 90 kg

DRUGS (1)
  1. KEYTRUDA [Suspect]
     Active Substance: PEMBROLIZUMAB
     Indication: Head and neck cancer
     Dates: start: 20200110, end: 20200304

REACTIONS (18)
  - Drug intolerance [None]
  - Weight decreased [None]
  - Asthenia [None]
  - General physical health deterioration [None]
  - Drug-disease interaction [None]
  - Malignant neoplasm progression [None]
  - Metastases to lung [None]
  - Metastasis [None]
  - Economic problem [None]
  - Gait inability [None]
  - Dysstasia [None]
  - Diarrhoea [None]
  - Oedema peripheral [None]
  - Candida infection [None]
  - Hyponatraemia [None]
  - Disease complication [None]
  - Hospice care [None]
  - Product complaint [None]

NARRATIVE: CASE EVENT DATE: 20200110
